FAERS Safety Report 7798504-7 (Version None)
Quarter: 2011Q4

REPORT INFORMATION
  Report Type: 
  Country: None (occurrence: None)
  Receive Date: 20111005
  Receipt Date: 20110929
  Transmission Date: 20120403
  Serious: Yes (Hospitalization)
  Sender: FDA-Public Use
  Company Number: US-ROXANE LABORATORIES, INC.-2011-RO-01374RO

PATIENT
  Age: 49 Year
  Sex: Male

DRUGS (1)
  1. MERCAPTOPURINE [Suspect]
     Indication: CROHN'S DISEASE
     Dosage: 100 MG

REACTIONS (3)
  - MENINGORADICULITIS [None]
  - HERPES ZOSTER [None]
  - PITYRIASIS ROSEA [None]
